FAERS Safety Report 13124777 (Version 4)
Quarter: 2017Q1

REPORT INFORMATION
  Report Type: Spontaneous
  Country: US (occurrence: US)
  Receive Date: 20170118
  Receipt Date: 20170124
  Transmission Date: 20170428
  Serious: No
  Sender: FDA-Public Use
  Company Number: US-BAYER-2017-008856

PATIENT
  Age: 59 Year
  Sex: Male
  Weight: 66 kg

DRUGS (4)
  1. ATORVASTATIN [Concomitant]
     Active Substance: ATORVASTATIN
  2. QUINAPRIL. [Concomitant]
     Active Substance: QUINAPRIL
  3. MIRALAX [Suspect]
     Active Substance: POLYETHYLENE GLYCOL 3350
     Indication: GASTROINTESTINAL DISORDER
     Dosage: 2/3 DOSE, QD
     Route: 048
     Dates: start: 201401
  4. PROAIR HFA [Concomitant]
     Active Substance: ALBUTEROL SULFATE

REACTIONS (3)
  - Product use issue [Unknown]
  - Underdose [Unknown]
  - Product use issue [Unknown]

NARRATIVE: CASE EVENT DATE: 201401
